FAERS Safety Report 20018373 (Version 1)
Quarter: 2021Q4

REPORT INFORMATION
  Report Type: Spontaneous
  Country: US (occurrence: US)
  Receive Date: 20211101
  Receipt Date: 20211101
  Transmission Date: 20220303
  Serious: No
  Sender: FDA-Public Use
  Company Number: US-BAUSCH-BL-2021-035420

PATIENT
  Sex: Female

DRUGS (1)
  1. LATANOPROST [Suspect]
     Active Substance: LATANOPROST
     Indication: Intraocular pressure increased
     Dosage: 125 MCG/2.5 ML, ABOUT SEVEN WEEKS
     Route: 065

REACTIONS (4)
  - Micturition urgency [Unknown]
  - Pollakiuria [Unknown]
  - Back pain [Unknown]
  - Dizziness [Unknown]

NARRATIVE: CASE EVENT DATE: 20210101
